FAERS Safety Report 8029273-3 (Version None)
Quarter: 2012Q1

REPORT INFORMATION
  Report Type: 
  Country: None (occurrence: None)
  Receive Date: 20120106
  Receipt Date: 20120105
  Transmission Date: 20120608
  Serious: Yes (Other)
  Sender: FDA-Public Use
  Company Number: SG-BAYER-2012-001406

PATIENT
  Age: 59 Year
  Sex: Female

DRUGS (2)
  1. OXYCODONE HCL [Suspect]
     Route: 048
  2. ACETYLSALICYLIC ACID SRT [Suspect]
     Route: 048

REACTIONS (3)
  - DIZZINESS [None]
  - PYREXIA [None]
  - ANGIOEDEMA [None]
